FAERS Safety Report 16052722 (Version 1)
Quarter: 2019Q1

REPORT INFORMATION
  Report Type: Spontaneous
  Country: US (occurrence: US)
  Receive Date: 20190308
  Receipt Date: 20190308
  Transmission Date: 20190418
  Serious: Yes (Life-Threatening, Hospitalization, Other)
  Sender: FDA-Public Use
  Company Number: US-UCBSA-049483

PATIENT
  Age: 18 Year
  Sex: Female
  Weight: 44 kg

DRUGS (15)
  1. CIMZIA [Suspect]
     Active Substance: CERTOLIZUMAB PEGOL
     Dosage: UNKNOWN DOSE
     Route: 058
     Dates: end: 20120119
  2. QUASENSE [Concomitant]
     Active Substance: ETHINYL ESTRADIOL\LEVONORGESTREL
     Indication: CONTRACEPTION
     Dosage: .15 MG, ONCE DAILY (QD)
     Route: 048
     Dates: start: 201004
  3. VENTOLIN [Concomitant]
     Active Substance: ALBUTEROL SULFATE
     Indication: PRODUCT USED FOR UNKNOWN INDICATION
     Dosage: UNK
     Dates: start: 2010
  4. DULERA [Concomitant]
     Active Substance: FORMOTEROL FUMARATE DIHYDRATE\MOMETASONE FUROATE
     Indication: PRODUCT USED FOR UNKNOWN INDICATION
     Dosage: UNK
  5. CIMZIA [Suspect]
     Active Substance: CERTOLIZUMAB PEGOL
     Indication: CROHN^S DISEASE
     Dosage: 200 MG/ML X2 SYRINGES
     Dates: start: 201012, end: 2010
  6. BENADRYL [Concomitant]
     Active Substance: DIPHENHYDRAMINE HYDROCHLORIDE
     Indication: HYPERSENSITIVITY
     Dosage: 25 MG, ONCE DAILY (QD)
     Route: 048
     Dates: start: 20120129, end: 20120131
  7. DIAZEPAM. [Concomitant]
     Active Substance: DIAZEPAM
     Indication: DYSPNOEA
     Dosage: UNK
     Dates: start: 2010
  8. DIAZEPAM. [Concomitant]
     Active Substance: DIAZEPAM
     Indication: PANIC ATTACK
  9. ALBUTEROL. [Concomitant]
     Active Substance: ALBUTEROL
     Indication: PRODUCT USED FOR UNKNOWN INDICATION
     Dosage: UNK
     Dates: start: 2010
  10. POTASSIUM [Concomitant]
     Active Substance: POTASSIUM
     Indication: HYPOKALAEMIA
     Dosage: 99 MG, ONCE DAILY (QD)
     Route: 048
     Dates: start: 20120106
  11. DUONEB [Concomitant]
     Active Substance: ALBUTEROL SULFATE\IPRATROPIUM BROMIDE
     Indication: DYSPNOEA
     Dosage: UNK
  12. LACTOBACILLUS ACIDOPHILUS [Concomitant]
     Active Substance: LACTOBACILLUS ACIDOPHILUS
     Indication: GASTRITIS PROPHYLAXIS
     Dosage: 315 MG, ONCE DAILY (QD)
     Route: 048
     Dates: start: 201004
  13. CIMZIA [Suspect]
     Active Substance: CERTOLIZUMAB PEGOL
     Dosage: UNK UNK, MONTHLY (QM)
     Route: 058
     Dates: start: 20111221, end: 20111221
  14. CIMZIA [Suspect]
     Active Substance: CERTOLIZUMAB PEGOL
     Dosage: UNK UNK, MONTHLY (QM)
     Route: 058
     Dates: start: 20120119, end: 20120119
  15. PREDNISONE. [Concomitant]
     Active Substance: PREDNISONE
     Indication: PRODUCT USED FOR UNKNOWN INDICATION

REACTIONS (10)
  - Panic attack [Unknown]
  - Respiratory alkalosis [Unknown]
  - Pharyngitis streptococcal [Unknown]
  - Anxiety [Unknown]
  - Chest pain [Unknown]
  - Menstruation delayed [Unknown]
  - Dyspnoea [Not Recovered/Not Resolved]
  - Hypokalaemia [Unknown]
  - Hyperventilation [Unknown]
  - Skin lesion [Unknown]

NARRATIVE: CASE EVENT DATE: 201012
